FAERS Safety Report 9827348 (Version 1)
Quarter: 2013Q4

REPORT INFORMATION
  Report Type: Spontaneous
  Country: US (occurrence: None)
  Receive Date: 20131120
  Receipt Date: 20131120
  Transmission Date: 20140711
  Serious: Yes (Other)
  Sender: FDA-Public Use
  Company Number: 1000047731

PATIENT
  Age: 78 Year
  Sex: Male

DRUGS (3)
  1. VIIBRYD [Suspect]
     Indication: DEPRESSION
     Route: 048
     Dates: start: 20130724, end: 20130730
  2. DOPAMINE(DOPAMINE)(DOPAMINE) [Concomitant]
  3. SINEMET(SINEMET)(SINEMET) [Concomitant]

REACTIONS (3)
  - Confusional state [None]
  - Thinking abnormal [None]
  - Somnolence [None]
